FAERS Safety Report 6904123-4 (Version None)
Quarter: 2010Q3

REPORT INFORMATION
  Report Type: 
  Country: None (occurrence: None)
  Receive Date: 20100804
  Receipt Date: 20090318
  Transmission Date: 20110219
  Serious: No
  Sender: FDA-Public Use
  Company Number: US-PFIZER INC-2008099267

PATIENT
  Sex: Female
  Weight: 54.545 kg

DRUGS (11)
  1. LYRICA [Suspect]
     Indication: PAIN
     Dosage: 50 MG, 1X/DAY
     Dates: start: 20081107
  2. NEXIUM [Concomitant]
     Indication: GASTROOESOPHAGEAL REFLUX DISEASE
     Dosage: 40 MG, 2X/DAY
  3. ANTIHYPERTENSIVES [Concomitant]
     Indication: HYPERTENSION
  4. COZAAR [Concomitant]
     Dosage: 100 MG, 1X/DAY
  5. HYDROCHLOROTHIAZIDE [Concomitant]
     Dosage: 25 MG, 1X/DAY
  6. NIFEDIPINE [Concomitant]
     Dosage: 60 MG, 1X/DAY
  7. CALCIUM CARBONATE [Concomitant]
     Dosage: UNK
  8. VITAMIN E [Concomitant]
     Dosage: UNK
  9. TYLENOL [Concomitant]
     Dosage: UNK
  10. OXYCODONE [Concomitant]
     Dosage: UNK
  11. IBANDRONATE SODIUM [Concomitant]
     Dosage: EVERY 6 MONTHS

REACTIONS (4)
  - DYSPHONIA [None]
  - HYPERSENSITIVITY [None]
  - PAIN [None]
  - PHARYNGEAL DISORDER [None]
